FAERS Safety Report 5922623-0 (Version None)
Quarter: 2008Q4

REPORT INFORMATION
  Report Type: 
  Country: None (occurrence: None)
  Receive Date: 20081017
  Receipt Date: 20081007
  Transmission Date: 20090506
  Serious: Yes (Hospitalization)
  Sender: FDA-Public Use
  Company Number: DE-ROCHE-580161

PATIENT
  Age: 65 Year
  Sex: Female
  Weight: 64 kg

DRUGS (4)
  1. CAPECITABINE [Suspect]
     Dosage: DOSAGE REGIMEN: D1-D14, Q21D (EVERY 21 DAY).
     Route: 048
     Dates: start: 20080505
  2. BONDRONAT [Concomitant]
     Route: 042
     Dates: start: 20071201
  3. CALCIUM [Concomitant]
     Route: 042
  4. CALCIUM [Concomitant]

REACTIONS (3)
  - FALL [None]
  - FOOT FRACTURE [None]
  - RADIUS FRACTURE [None]
